FAERS Safety Report 6194002-5 (Version None)
Quarter: 2009Q2

REPORT INFORMATION
  Report Type: 
  Country: None (occurrence: None)
  Receive Date: 20090518
  Receipt Date: 20090512
  Transmission Date: 20091009
  Serious: Yes (Other)
  Sender: FDA-Public Use
  Company Number: PHEH2009US04243

PATIENT
  Sex: Male

DRUGS (1)
  1. AFINITOR [Suspect]
     Indication: RENAL CELL CARCINOMA
     Dosage: 10 MG, QD
     Route: 048
     Dates: start: 20090421

REACTIONS (10)
  - ASTHENIA [None]
  - BACK PAIN [None]
  - COLD SWEAT [None]
  - DISORIENTATION [None]
  - DIZZINESS [None]
  - LOSS OF CONSCIOUSNESS [None]
  - MUSCULOSKELETAL PAIN [None]
  - NAUSEA [None]
  - SYNCOPE [None]
  - VOMITING [None]
